FAERS Safety Report 24346066 (Version 1)
Quarter: 2024Q3

REPORT INFORMATION
  Report Type: Spontaneous
  Country: AE (occurrence: AE)
  Receive Date: 20240921
  Receipt Date: 20240921
  Transmission Date: 20241016
  Serious: Yes (Hospitalization, Other)
  Sender: NOVITIUM PHARMA
  Company Number: AE-NOVITIUMPHARMA-2024AENVP01876

PATIENT
  Age: 6 Year
  Sex: Female

DRUGS (19)
  1. DEXAMETHASONE [Suspect]
     Active Substance: DEXAMETHASONE
     Indication: Immunosuppressant drug therapy
     Dosage: 2 CYCLES
  2. DEFERASIROX [Concomitant]
     Active Substance: DEFERASIROX
     Indication: Iron overload
  3. DEFERIPRONE [Concomitant]
     Active Substance: DEFERIPRONE
     Indication: Iron overload
  4. FLUDARABINE [Concomitant]
     Active Substance: FLUDARABINE PHOSPHATE
     Dosage: 2 CYCLES
  5. THIOTEPA [Concomitant]
     Active Substance: THIOTEPA
  6. TREOSULFAN [Concomitant]
     Active Substance: TREOSULFAN
     Indication: Immunosuppressant drug therapy
  7. THYMOCYTE IMMUNE GLOBULIN NOS [Concomitant]
     Active Substance: THYMOCYTE IMMUNE GLOBULIN NOS
     Indication: Immunosuppressant drug therapy
  8. CYCLOPHOSPHAMIDE [Concomitant]
     Active Substance: CYCLOPHOSPHAMIDE
  9. MYCOPHENOLATE MOFETIL [Concomitant]
     Active Substance: MYCOPHENOLATE MOFETIL
  10. TACROLIMUS [Concomitant]
     Active Substance: TACROLIMUS
  11. METHYLPREDNISOLONE [Concomitant]
     Active Substance: METHYLPREDNISOLONE
     Indication: Product used for unknown indication
  12. PREDNISOLONE [Concomitant]
     Active Substance: PREDNISOLONE
     Indication: Product used for unknown indication
  13. COTRIMOXAZOLE [Concomitant]
     Active Substance: SULFAMETHOXAZOLE\TRIMETHOPRIM
     Indication: Prophylaxis
  14. VORICONAZOLE [Concomitant]
     Active Substance: VORICONAZOLE
     Indication: Prophylaxis
  15. ACYCLOVIR [Concomitant]
     Active Substance: ACYCLOVIR
     Indication: Prophylaxis
  16. CEFTRIAXONE [Concomitant]
     Active Substance: CEFTRIAXONE\CEFTRIAXONE SODIUM
  17. CEFTAZIDIME [Concomitant]
     Active Substance: CEFTAZIDIME
  18. VANCOMYCIN [Concomitant]
     Active Substance: VANCOMYCIN
  19. IMMUNE GLOBULIN [Concomitant]
     Indication: Product used for unknown indication

REACTIONS (1)
  - Human herpesvirus 6 encephalitis [Recovered/Resolved]
